FAERS Safety Report 8517039-7 (Version None)
Quarter: 2012Q3

REPORT INFORMATION
  Report Type: 
  Country: None (occurrence: None)
  Receive Date: 20120706
  Receipt Date: 20120612
  Transmission Date: 20120928
  Serious: Yes (Other)
  Sender: FDA-Public Use
  Company Number: 2012-307

PATIENT
  Sex: Female

DRUGS (3)
  1. PRIALT [Suspect]
     Indication: PAIN
     Dosage: 0.01 UG, ONCE/HOUR, INTRATHECAL
     Route: 037
     Dates: start: 20090407, end: 20090501
  2. PRIALT [Suspect]
     Indication: SPINAL FUSION SURGERY
     Dosage: 0.01 UG, ONCE/HOUR, INTRATHECAL
     Route: 037
     Dates: start: 20090407, end: 20090501
  3. MORPHINE SULFATE [Suspect]
     Dosage: 0.54 MG, ONCE/HOUR, INTRATHECAL
     Route: 037

REACTIONS (6)
  - CATATONIA [None]
  - LOSS OF CONSCIOUSNESS [None]
  - AMNESIA [None]
  - SLEEP DISORDER [None]
  - THINKING ABNORMAL [None]
  - HALLUCINATION [None]
